FAERS Safety Report 17508049 (Version 1)
Quarter: 2020Q1

REPORT INFORMATION
  Report Type: Spontaneous
  Country: FR (occurrence: FR)
  Receive Date: 20200306
  Receipt Date: 20200306
  Transmission Date: 20200409
  Serious: Yes (Hospitalization)
  Sender: FDA-Public Use
  Company Number: FR-ROCHE-2562748

PATIENT
  Age: 23 Year
  Sex: Male

DRUGS (3)
  1. TERCIAN [CYAMEMAZINE] [Interacting]
     Active Substance: CYAMEMAZINE
     Indication: POISONING DELIBERATE
     Route: 048
     Dates: start: 20200103
  2. IMOVANE [Interacting]
     Active Substance: ZOPICLONE
     Indication: POISONING DELIBERATE
     Route: 048
     Dates: start: 20200103
  3. VALIUM [Suspect]
     Active Substance: DIAZEPAM
     Indication: POISONING DELIBERATE
     Route: 048
     Dates: start: 20200103

REACTIONS (2)
  - Somnolence [Recovered/Resolved]
  - Drug interaction [Unknown]

NARRATIVE: CASE EVENT DATE: 20200103
